FAERS Safety Report 10028181 (Version 4)
Quarter: 2014Q2

REPORT INFORMATION
  Report Type: Spontaneous
  Country: PE (occurrence: PE)
  Receive Date: 20140321
  Receipt Date: 20140521
  Transmission Date: 20141212
  Serious: Yes (Hospitalization, Other)
  Sender: FDA-Public Use
  Company Number: PE-JNJFOC-20140311013

PATIENT
  Age: 62 Year
  Sex: Male
  Weight: 90 kg

DRUGS (4)
  1. REMICADE [Suspect]
     Indication: PSORIASIS
     Dosage: TOTAL NO OF INFUSION RECEIVED 19
     Route: 042
     Dates: start: 20140101, end: 20140101
  2. REMICADE [Suspect]
     Indication: PSORIASIS
     Route: 042
     Dates: start: 20090501
  3. REMICADE [Suspect]
     Indication: PSORIATIC ARTHROPATHY
     Dosage: TOTAL NO OF INFUSION RECEIVED 19
     Route: 042
     Dates: start: 20140101, end: 20140101
  4. REMICADE [Suspect]
     Indication: PSORIATIC ARTHROPATHY
     Route: 042
     Dates: start: 20090501

REACTIONS (3)
  - Renal failure [Recovering/Resolving]
  - Hepatic failure [Recovering/Resolving]
  - Disseminated tuberculosis [Recovering/Resolving]
